FAERS Safety Report 13275821 (Version 1)
Quarter: 2017Q1

REPORT INFORMATION
  Report Type: Spontaneous
  Country: US (occurrence: US)
  Receive Date: 20170227
  Receipt Date: 20170227
  Transmission Date: 20170428
  Serious: Yes (Other)
  Sender: FDA-Public Use
  Company Number: None

PATIENT
  Age: 69 Year
  Sex: Female
  Weight: 64.8 kg

DRUGS (10)
  1. SYNTHROID [Concomitant]
     Active Substance: LEVOTHYROXINE SODIUM
  2. METAXALONE. [Concomitant]
     Active Substance: METAXALONE
  3. ATIVAN [Concomitant]
     Active Substance: LORAZEPAM
  4. MAGNESIUM [Concomitant]
     Active Substance: MAGNESIUM
  5. MULTIVITAMIN [Concomitant]
     Active Substance: VITAMINS
  6. VITAMIN D3 [Concomitant]
     Active Substance: CHOLECALCIFEROL
  7. CIPRO [Suspect]
     Active Substance: CIPROFLOXACIN HYDROCHLORIDE
     Indication: CYSTITIS
     Route: 048
  8. RESTASIS [Concomitant]
     Active Substance: CYCLOSPORINE
  9. PROLIA [Suspect]
     Active Substance: DENOSUMAB
     Indication: OSTEOPOROSIS
     Route: 042
     Dates: start: 20161117
  10. GABAPENTIN. [Concomitant]
     Active Substance: GABAPENTIN

REACTIONS (3)
  - Tendon disorder [None]
  - Ligament disorder [None]
  - Muscle tightness [None]

NARRATIVE: CASE EVENT DATE: 20000115
